FAERS Safety Report 7649907-2 (Version None)
Quarter: 2011Q3

REPORT INFORMATION
  Report Type: 
  Country: None (occurrence: None)
  Receive Date: 20110802
  Receipt Date: 20080818
  Transmission Date: 20111222
  Serious: Yes (Other)
  Sender: FDA-Public Use
  Company Number: US-BAYER-200825368NA

PATIENT
  Age: 57 Year
  Sex: Male
  Weight: 77.098 kg

DRUGS (58)
  1. OMNISCAN [Suspect]
     Indication: NUCLEAR MAGNETIC RESONANCE IMAGING
     Dosage: UNK UNK, ONCE
     Dates: start: 20050825, end: 20050825
  2. OMNISCAN [Suspect]
     Indication: VENOGRAM
     Dosage: UNK, ONCE
     Dates: start: 20050906, end: 20050906
  3. OMNISCAN [Suspect]
     Dosage: UNK, ONCE
     Dates: start: 20051001, end: 20051001
  4. OMNISCAN [Suspect]
     Dosage: UNK, ONCE
     Dates: start: 20051018, end: 20051018
  5. OPTIMARK [Suspect]
     Dosage: 19 ML, ONCE
     Dates: start: 20050705, end: 20050705
  6. COUMADIN [Concomitant]
  7. ATIVAN [Concomitant]
  8. ACETAMINOPHEN [Concomitant]
  9. PROTONIX [Concomitant]
  10. CALCITONIN SALMON [Concomitant]
  11. LABETALOL HCL [Concomitant]
  12. RENAGEL [Concomitant]
  13. PHOSLO [Concomitant]
  14. OMNISCAN [Suspect]
     Indication: ANGIOGRAM
     Dosage: UNK, ONCE
     Dates: start: 20050830, end: 20050830
  15. OMNISCAN [Suspect]
     Dosage: UNK, ONCE
     Dates: start: 20051103, end: 20051103
  16. LOPRESSOR [Concomitant]
  17. VIAGRA [Concomitant]
  18. OMNISCAN [Suspect]
     Dosage: UNK, ONCE
     Dates: start: 20050928, end: 20050929
  19. ACETYLSALICYLIC ACID SRT [Concomitant]
  20. SODIUM CITRATE [Concomitant]
  21. FLAGYL [Concomitant]
  22. ZAROXOLYN [Concomitant]
  23. NEPHROVITE [VIT C,VIT H,B5,B12,B9,B3,B6,B2,B1 HCL] [Concomitant]
  24. KAYEXALATE [Concomitant]
  25. LEXAPRO [Concomitant]
  26. NORMODYNE [Concomitant]
  27. OPTIMARK [Suspect]
     Indication: NUCLEAR MAGNETIC RESONANCE IMAGING
     Dosage: 19 ML, UNK
     Dates: start: 20050420, end: 20050420
  28. FOLIC ACID [Concomitant]
  29. SPIRIVA [Concomitant]
  30. OXYCODONE HCL [Concomitant]
  31. MULTIHANCE [Suspect]
     Indication: NUCLEAR MAGNETIC RESONANCE IMAGING
  32. PROHANCE [Suspect]
     Indication: NUCLEAR MAGNETIC RESONANCE IMAGING
  33. GADOLINIUM IN UNSPECIFIED DRUG [Suspect]
     Indication: NUCLEAR MAGNETIC RESONANCE IMAGING
     Dosage: UNK UNK, ONCE
     Dates: start: 20060317, end: 20060317
  34. TRAZODONE HYDROCHLORIDE [Concomitant]
  35. LASIX [Concomitant]
  36. FOSAMAX [Concomitant]
  37. COMPAZINE [Concomitant]
  38. OMNISCAN [Suspect]
     Dosage: UNK, ONCE
     Dates: start: 20050901, end: 20050901
  39. OMNISCAN [Suspect]
     Dosage: UNK, ONCE
     Dates: start: 20050908, end: 20050908
  40. OMNISCAN [Suspect]
     Dosage: UNK, ONCE
     Dates: start: 20051003, end: 20051003
  41. OMNISCAN [Suspect]
     Dosage: UNK, ONCE
     Dates: start: 20051021, end: 20051021
  42. OMNISCAN [Suspect]
     Dosage: UNK
  43. MAGNESIUM OXIDE [Concomitant]
  44. MS CONTIN [Concomitant]
  45. WELLBUTRIN [Concomitant]
  46. MIRAPEX [Concomitant]
  47. MAGNEVIST [Suspect]
     Indication: NUCLEAR MAGNETIC RESONANCE IMAGING
  48. THIAMINE [Concomitant]
  49. HEPARIN [Concomitant]
  50. CYTOXAN [Concomitant]
  51. CALCITRIOL [Concomitant]
  52. NORVASC [Concomitant]
  53. PENTAMIDINE ISETHIONATE [Concomitant]
  54. LISINOPRIL [Concomitant]
  55. PRAVACHOL [Concomitant]
  56. ALBUTEROL SULFATE AUTOHALER [Concomitant]
  57. PREDNISONE TAB [Concomitant]
  58. DARBEPOETIN ALFA [Concomitant]

REACTIONS (20)
  - NEPHROGENIC SYSTEMIC FIBROSIS [None]
  - ANXIETY [None]
  - FATIGUE [None]
  - ANHEDONIA [None]
  - MOBILITY DECREASED [None]
  - SCAR [None]
  - PEAU D'ORANGE [None]
  - SKIN HYPERTROPHY [None]
  - PRURITUS [None]
  - JOINT STIFFNESS [None]
  - EMOTIONAL DISTRESS [None]
  - PAIN [None]
  - SKIN LESION [None]
  - HYPOAESTHESIA [None]
  - DRY SKIN [None]
  - ERYTHEMA [None]
  - OEDEMA PERIPHERAL [None]
  - MUSCULOSKELETAL STIFFNESS [None]
  - MUSCULAR WEAKNESS [None]
  - INJURY [None]
